FAERS Safety Report 9648571 (Version 4)
Quarter: 2013Q4

REPORT INFORMATION
  Report Type: Spontaneous
  Country: US (occurrence: US)
  Receive Date: 20131028
  Receipt Date: 20131210
  Transmission Date: 20140711
  Serious: Yes (Hospitalization, Other)
  Sender: FDA-Public Use
  Company Number: US-GILEAD-2013-0085497

PATIENT
  Sex: Female

DRUGS (3)
  1. LETAIRIS [Suspect]
     Indication: PRODUCT USED FOR UNKNOWN INDICATION
     Dosage: 5 MG, QD
     Dates: start: 20110325
  2. REVATIO [Concomitant]
  3. REMODULIN [Concomitant]

REACTIONS (2)
  - Cardiac failure congestive [Unknown]
  - Unevaluable event [Unknown]
